FAERS Safety Report 4837842-4 (Version None)
Quarter: 2005Q4

REPORT INFORMATION
  Report Type: 
  Country: None (occurrence: None)
  Receive Date: 20051123
  Receipt Date: 20051123
  Transmission Date: 20060501
  Serious: Yes (Disabling)
  Sender: FDA-Public Use
  Company Number: None

PATIENT
  Age: 52 Year
  Sex: Male
  Weight: 77.5651 kg

DRUGS (1)
  1. ANGIOMAX [Suspect]
     Indication: PULMONARY EMBOLISM
     Dosage: 0.11MG/KG/HR  CONTINUOUS DRIP IV
     Route: 042
     Dates: start: 20051115, end: 20051118

REACTIONS (3)
  - ACTIVATED PARTIAL THROMBOPLASTIN TIME SHORTENED [None]
  - PAIN [None]
  - PHARMACEUTICAL PRODUCT COMPLAINT [None]
